FAERS Safety Report 23899023 (Version 2)
Quarter: 2024Q3

REPORT INFORMATION
  Report Type: Spontaneous
  Country: US (occurrence: None)
  Receive Date: 20240525
  Receipt Date: 20240708
  Transmission Date: 20241017
  Serious: Yes (Hospitalization)
  Sender: ASTRAZENECA
  Company Number: 2024A120039

PATIENT
  Sex: Female

DRUGS (1)
  1. CALQUENCE [Suspect]
     Active Substance: ACALABRUTINIB
     Route: 048

REACTIONS (5)
  - Atrial flutter [Unknown]
  - Red blood cell count decreased [Unknown]
  - Dyspepsia [Unknown]
  - Haemoglobin abnormal [Unknown]
  - Drug effect less than expected [Unknown]
